FAERS Safety Report 16484610 (Version 2)
Quarter: 2019Q3

REPORT INFORMATION
  Report Type: Spontaneous
  Country: US (occurrence: US)
  Receive Date: 20190627
  Receipt Date: 20190705
  Transmission Date: 20191004
  Serious: No
  Sender: FDA-Public Use
  Company Number: US-PFIZER INC-2019274973

PATIENT
  Age: 55 Year
  Sex: Male

DRUGS (1)
  1. TACROLIMUS. [Suspect]
     Active Substance: TACROLIMUS
     Indication: IMMUNOSUPPRESSION
     Dosage: 7 MG, 1X/DAY (TAKE 4MG (4 TABS) IN THE AM AND 3MG (3 TABS) IN PM)

REACTIONS (2)
  - Drug level decreased [Unknown]
  - Product dose omission [Unknown]
